FAERS Safety Report 23391386 (Version 2)
Quarter: 2024Q1

REPORT INFORMATION
  Report Type: Spontaneous
  Country: US (occurrence: US)
  Receive Date: 20240111
  Receipt Date: 20240130
  Transmission Date: 20240410
  Serious: No
  Sender: FDA-Public Use
  Company Number: US-JNJFOC-20231262046

PATIENT
  Age: 8 Decade
  Sex: Male

DRUGS (7)
  1. TYLENOL [Suspect]
     Active Substance: ACETAMINOPHEN
     Indication: Arthralgia
     Route: 065
     Dates: start: 2023
  2. TYLENOL [Suspect]
     Active Substance: ACETAMINOPHEN
     Indication: Arthralgia
  3. TYLENOL [Suspect]
     Active Substance: ACETAMINOPHEN
     Indication: Back pain
  4. ERLEADA [Concomitant]
     Active Substance: APALUTAMIDE
     Indication: Prostate cancer metastatic
     Route: 048
     Dates: start: 2023
  5. ADVIL [Concomitant]
     Active Substance: IBUPROFEN
     Indication: Arthralgia
     Route: 065
     Dates: start: 2023
  6. ADVIL [Concomitant]
     Active Substance: IBUPROFEN
     Indication: Arthralgia
  7. ADVIL [Concomitant]
     Active Substance: IBUPROFEN
     Indication: Back pain

REACTIONS (1)
  - Therapeutic product effect incomplete [Unknown]

NARRATIVE: CASE EVENT DATE: 20230101
